FAERS Safety Report 9198394 (Version 1)
Quarter: 2013Q1

REPORT INFORMATION
  Report Type: Spontaneous
  Country: US (occurrence: None)
  Receive Date: 20130327
  Receipt Date: 20130327
  Transmission Date: 20140127
  Serious: Yes (Other)
  Sender: FDA-Public Use
  Company Number: None

PATIENT
  Age: 84 Year
  Sex: Male
  Weight: 71.22 kg

DRUGS (2)
  1. AMIODIPINE BESYLATE 2.5 MG, GREENSTONE BRAND [Suspect]
     Indication: HYPERTENSION
     Dates: start: 20121211
  2. ATENOLOL [Concomitant]

REACTIONS (2)
  - Chills [None]
  - Movement disorder [None]
